FAERS Safety Report 6988978-3 (Version None)
Quarter: 2010Q3

REPORT INFORMATION
  Report Type: 
  Country: None (occurrence: None)
  Receive Date: 20100916
  Receipt Date: 20090728
  Transmission Date: 20110219
  Serious: Yes (Other)
  Sender: FDA-Public Use
  Company Number: DE-PFIZER INC-2009224373

PATIENT
  Sex: Female
  Weight: 80 kg

DRUGS (3)
  1. LYRICA [Suspect]
     Indication: POLYNEUROPATHY
     Dosage: 25 MG, 1X/DAY
     Route: 048
     Dates: start: 20090523, end: 20090523
  2. LYRICA [Suspect]
     Indication: INSOMNIA
  3. LYRICA [Suspect]
     Indication: MOOD SWINGS

REACTIONS (3)
  - ANAPHYLACTIC SHOCK [None]
  - BLOOD GLUCOSE ABNORMAL [None]
  - CARDIAC FAILURE [None]
